FAERS Safety Report 7093836-2 (Version None)
Quarter: 2010Q4

REPORT INFORMATION
  Report Type: 
  Country: None (occurrence: None)
  Receive Date: 20101110
  Receipt Date: 20101101
  Transmission Date: 20110411
  Serious: Yes (Hospitalization)
  Sender: FDA-Public Use
  Company Number: A0856517A

PATIENT
  Age: 44 Year
  Sex: Female
  Weight: 102 kg

DRUGS (3)
  1. LAPATINIB [Suspect]
     Indication: BREAST CANCER
     Dosage: 750MG PER DAY
     Route: 048
     Dates: start: 20091021
  2. DOCETAXEL [Suspect]
     Indication: BREAST CANCER
     Dosage: 75MGM2 EVERY 3 WEEKS
     Route: 042
     Dates: start: 20091021, end: 20091223
  3. PREDNISONE [Concomitant]

REACTIONS (15)
  - ABDOMINAL PAIN [None]
  - CHOLECYSTITIS [None]
  - COLITIS [None]
  - DEHYDRATION [None]
  - DIARRHOEA [None]
  - DIVERTICULITIS [None]
  - GASTROENTERITIS [None]
  - HAEMORRHAGE [None]
  - HAEMORRHOIDS [None]
  - HIATUS HERNIA [None]
  - INFECTION [None]
  - NAUSEA [None]
  - OPERATIVE HAEMORRHAGE [None]
  - REFLUX GASTRITIS [None]
  - VOMITING [None]
